FAERS Safety Report 24376411 (Version 2)
Quarter: 2025Q1

REPORT INFORMATION
  Report Type: Spontaneous
  Country: CA (occurrence: CA)
  Receive Date: 20240930
  Receipt Date: 20250127
  Transmission Date: 20250408
  Serious: Yes (Other)
  Sender: Haleon PLC
  Company Number: CA-HALEON-2198449

PATIENT
  Age: 53 Year
  Sex: Male

DRUGS (427)
  1. NEXIUM 24HR [Suspect]
     Active Substance: ESOMEPRAZOLE MAGNESIUM
     Indication: Gastritis
     Route: 065
  2. BETNOVATE [Concomitant]
     Active Substance: BETAMETHASONE
     Indication: Product used for unknown indication
     Route: 065
  3. BISOPROLOL [Concomitant]
     Active Substance: BISOPROLOL
     Indication: Product used for unknown indication
     Route: 065
  4. CALCIUM CARBONATE/MAGNESIUM CARBONATE [Concomitant]
     Indication: Product used for unknown indication
     Route: 065
  5. CALCIUM CARBONATE/SODIUM ALGINATE/SODIUM BICARBONATE [Concomitant]
     Indication: Product used for unknown indication
     Route: 065
  6. CALCIUM CARBONATE/SODIUM ALGINATE/SODIUM BICARBONATE [Concomitant]
     Route: 065
  7. CALCIUM CARBONATE/SODIUM ALGINATE/SODIUM BICARBONATE [Concomitant]
  8. CALCIUM CARBONATE\CHOLECALCIFEROL [Concomitant]
     Active Substance: CALCIUM CARBONATE\CHOLECALCIFEROL
     Indication: Product used for unknown indication
     Route: 065
  9. CALCIUM CARBONATE\CHOLECALCIFEROL [Concomitant]
     Active Substance: CALCIUM CARBONATE\CHOLECALCIFEROL
  10. CALCIUM CARBONATE\CHOLECALCIFEROL [Concomitant]
     Active Substance: CALCIUM CARBONATE\CHOLECALCIFEROL
     Route: 065
  11. CLOBETASONE BUTYRATE [Concomitant]
     Active Substance: CLOBETASONE BUTYRATE
     Indication: Product used for unknown indication
     Route: 065
  12. CITALOPRAM HYDROCHLORIDE [Concomitant]
     Active Substance: CITALOPRAM HYDROCHLORIDE
     Indication: Product used for unknown indication
     Route: 065
  13. FESOTERODINE FUMARATE [Concomitant]
     Active Substance: FESOTERODINE FUMARATE
     Indication: Product used for unknown indication
     Route: 065
  14. FOLIC ACID [Concomitant]
     Active Substance: FOLIC ACID
     Indication: Product used for unknown indication
     Route: 065
  15. HUMIRA [Concomitant]
     Active Substance: ADALIMUMAB
     Indication: Deep vein thrombosis
     Route: 048
  16. HUMIRA [Concomitant]
     Active Substance: ADALIMUMAB
     Indication: Crohn^s disease
     Route: 065
  17. HUMIRA [Concomitant]
     Active Substance: ADALIMUMAB
     Indication: Colitis ulcerative
     Route: 065
  18. HUMIRA [Concomitant]
     Active Substance: ADALIMUMAB
     Route: 048
  19. HUMIRA [Concomitant]
     Active Substance: ADALIMUMAB
     Route: 065
  20. LANSOPRAZOLE [Concomitant]
     Active Substance: LANSOPRAZOLE
     Indication: Product used for unknown indication
     Route: 065
  21. ACETAMINOPHEN [Concomitant]
     Active Substance: ACETAMINOPHEN
     Indication: Product used for unknown indication
     Route: 065
  22. ACETAMINOPHEN [Concomitant]
     Active Substance: ACETAMINOPHEN
     Indication: Ill-defined disorder
     Route: 065
  23. AMLODIPINE [Concomitant]
     Active Substance: AMLODIPINE BESYLATE
     Indication: Product used for unknown indication
     Route: 065
  24. AMLODIPINE BESYLATE [Concomitant]
     Active Substance: AMLODIPINE BESYLATE
     Indication: Product used for unknown indication
     Route: 065
  25. ATORVASTATIN CALCIUM [Concomitant]
     Active Substance: ATORVASTATIN CALCIUM
     Indication: Product used for unknown indication
     Route: 065
  26. ATORVASTATIN CALCIUM [Concomitant]
     Active Substance: ATORVASTATIN CALCIUM
     Route: 065
  27. LATANOPROST [Concomitant]
     Active Substance: LATANOPROST
     Indication: Product used for unknown indication
     Route: 065
  28. LATANOPROST [Concomitant]
     Active Substance: LATANOPROST
     Route: 065
  29. LYRICA [Concomitant]
     Active Substance: PREGABALIN
     Indication: Product used for unknown indication
     Route: 065
  30. MACROGOL 3350/POTASSIUM CHLORIDE/SODIUM BICARBONATE/SODIUM?CHLORIDE [Concomitant]
     Indication: Product used for unknown indication
     Route: 065
  31. MACROGOL 3350/POTASSIUM CHLORIDE/SODIUM BICARBONATE/SODIUM?CHLORIDE [Concomitant]
     Route: 065
  32. MACROGOL 3350/POTASSIUM CHLORIDE/SODIUM BICARBONATE/SODIUM?CHLORIDE [Concomitant]
     Route: 065
  33. MACROGOL 3350/POTASSIUM CHLORIDE/SODIUM BICARBONATE/SODIUM?CHLORIDE [Concomitant]
  34. MACROGOL 3350/POTASSIUM CHLORIDE/SODIUM BICARBONATE/SODIUM?CHLORIDE [Concomitant]
  35. MACROGOL 3350/POTASSIUM CHLORIDE/SODIUM BICARBONATE/SODIUM?CHLORIDE [Concomitant]
  36. ASPIRIN [Suspect]
     Active Substance: ASPIRIN
     Indication: Product used for unknown indication
     Route: 065
  37. ASPIRIN [Suspect]
     Active Substance: ASPIRIN
     Route: 065
  38. BUDESONIDE [Suspect]
     Active Substance: BUDESONIDE
     Indication: Product used for unknown indication
     Route: 048
  39. BUDESONIDE [Suspect]
     Active Substance: BUDESONIDE
     Indication: Colitis ulcerative
     Route: 048
  40. BUDESONIDE [Suspect]
     Active Substance: BUDESONIDE
     Route: 065
  41. BUDESONIDE [Suspect]
     Active Substance: BUDESONIDE
     Route: 048
  42. BUDESONIDE [Suspect]
     Active Substance: BUDESONIDE
     Route: 048
  43. BUDESONIDE [Suspect]
     Active Substance: BUDESONIDE
     Route: 065
  44. BUDESONIDE [Suspect]
     Active Substance: BUDESONIDE
     Route: 065
  45. BUDESONIDE [Suspect]
     Active Substance: BUDESONIDE
     Route: 065
  46. BUDESONIDE [Suspect]
     Active Substance: BUDESONIDE
     Route: 065
  47. BUDESONIDE [Suspect]
     Active Substance: BUDESONIDE
     Route: 048
  48. CANDESARTAN [Suspect]
     Active Substance: CANDESARTAN
     Indication: Product used for unknown indication
     Route: 048
  49. AZD-1222 [Suspect]
     Active Substance: AZD-1222
     Indication: COVID-19 immunisation
     Route: 065
  50. AZD-1222 [Suspect]
     Active Substance: AZD-1222
     Route: 065
  51. AZD-1222 [Suspect]
     Active Substance: AZD-1222
     Route: 065
  52. AZD-1222 [Suspect]
     Active Substance: AZD-1222
     Route: 065
  53. AZD-1222 [Suspect]
     Active Substance: AZD-1222
     Route: 065
  54. AZD-1222 [Suspect]
     Active Substance: AZD-1222
     Route: 065
  55. AZD-1222 [Suspect]
     Active Substance: AZD-1222
     Route: 065
  56. AZD-1222 [Suspect]
     Active Substance: AZD-1222
     Route: 065
  57. AZD-1222 [Suspect]
     Active Substance: AZD-1222
     Route: 065
  58. AZD-1222 [Suspect]
     Active Substance: AZD-1222
     Route: 065
  59. AZD-1222 [Suspect]
     Active Substance: AZD-1222
     Route: 065
  60. AZD-1222 [Suspect]
     Active Substance: AZD-1222
     Route: 065
  61. AZD-1222 [Suspect]
     Active Substance: AZD-1222
     Route: 065
  62. DAPAGLIFLOZIN [Suspect]
     Active Substance: DAPAGLIFLOZIN
     Indication: Product used for unknown indication
     Route: 065
  63. DAPAGLIFLOZIN [Suspect]
     Active Substance: DAPAGLIFLOZIN
     Indication: Ill-defined disorder
     Route: 065
  64. DORZOLAMIDE HYDROCHLORIDE [Concomitant]
     Active Substance: DORZOLAMIDE HYDROCHLORIDE
     Indication: Product used for unknown indication
     Route: 065
  65. EMPAGLIFLOZIN [Concomitant]
     Active Substance: EMPAGLIFLOZIN
     Indication: Product used for unknown indication
     Route: 065
  66. ENTYVIO [Suspect]
     Active Substance: VEDOLIZUMAB
     Indication: Product used for unknown indication
     Route: 065
  67. ENTYVIO [Suspect]
     Active Substance: VEDOLIZUMAB
     Indication: Deep vein thrombosis
     Route: 065
  68. ENTYVIO [Suspect]
     Active Substance: VEDOLIZUMAB
     Indication: Colitis ulcerative
     Route: 065
  69. ENTYVIO [Suspect]
     Active Substance: VEDOLIZUMAB
     Route: 048
  70. ENTYVIO [Suspect]
     Active Substance: VEDOLIZUMAB
     Route: 065
  71. ENTYVIO [Suspect]
     Active Substance: VEDOLIZUMAB
     Route: 048
  72. ENTYVIO [Suspect]
     Active Substance: VEDOLIZUMAB
     Route: 042
  73. ENTYVIO [Suspect]
     Active Substance: VEDOLIZUMAB
     Route: 042
  74. INFLIXIMAB [Suspect]
     Active Substance: INFLIXIMAB
     Indication: Product used for unknown indication
     Route: 065
  75. INFLIXIMAB [Suspect]
     Active Substance: INFLIXIMAB
     Indication: Crohn^s disease
     Route: 042
  76. INFLIXIMAB [Suspect]
     Active Substance: INFLIXIMAB
     Indication: Colitis ulcerative
     Route: 042
  77. INFLIXIMAB [Suspect]
     Active Substance: INFLIXIMAB
     Route: 042
  78. INFLIXIMAB [Suspect]
     Active Substance: INFLIXIMAB
     Route: 042
  79. INFLIXIMAB [Suspect]
     Active Substance: INFLIXIMAB
     Route: 042
  80. INFLIXIMAB [Suspect]
     Active Substance: INFLIXIMAB
     Route: 065
  81. INFLIXIMAB [Suspect]
     Active Substance: INFLIXIMAB
     Route: 042
  82. INFLIXIMAB [Suspect]
     Active Substance: INFLIXIMAB
     Route: 042
  83. INFLIXIMAB [Suspect]
     Active Substance: INFLIXIMAB
     Route: 065
  84. INFLIXIMAB [Suspect]
     Active Substance: INFLIXIMAB
     Route: 065
  85. INFLIXIMAB [Suspect]
     Active Substance: INFLIXIMAB
     Route: 042
  86. INFLIXIMAB [Suspect]
     Active Substance: INFLIXIMAB
     Route: 042
  87. INFLIXIMAB [Suspect]
     Active Substance: INFLIXIMAB
     Route: 065
  88. LEVOTHYROXINE SODIUM [Suspect]
     Active Substance: LEVOTHYROXINE SODIUM
     Indication: Product used for unknown indication
     Route: 065
  89. LISDEXAMFETAMINE DIMESYLATE [Suspect]
     Active Substance: LISDEXAMFETAMINE DIMESYLATE
     Indication: Product used for unknown indication
     Route: 065
  90. OMEPRAZOLE MAGNESIUM [Suspect]
     Active Substance: OMEPRAZOLE MAGNESIUM
     Indication: Gastritis
     Route: 065
  91. OMEPRAZOLE MAGNESIUM [Suspect]
     Active Substance: OMEPRAZOLE MAGNESIUM
     Indication: Product used for unknown indication
     Route: 065
  92. OXYCODONE HYDROCHLORIDE [Suspect]
     Active Substance: OXYCODONE HYDROCHLORIDE
     Indication: Product used for unknown indication
     Route: 065
  93. OXYCODONE HYDROCHLORIDE [Suspect]
     Active Substance: OXYCODONE HYDROCHLORIDE
     Route: 065
  94. PARA-AMINOSALICYLIC ACID [Suspect]
     Active Substance: AMINOSALICYLIC ACID
     Indication: Product used for unknown indication
     Route: 048
  95. PREDNISONE [Suspect]
     Active Substance: PREDNISONE
     Indication: Colitis ulcerative
     Route: 065
  96. PREDNISONE [Suspect]
     Active Substance: PREDNISONE
     Route: 065
  97. PREDNISONE [Suspect]
     Active Substance: PREDNISONE
     Route: 065
  98. PREDNISONE [Suspect]
     Active Substance: PREDNISONE
     Dosage: 8.0 YEARS
     Route: 065
  99. PREDNISONE [Suspect]
     Active Substance: PREDNISONE
     Route: 065
  100. PREDNISONE [Suspect]
     Active Substance: PREDNISONE
     Route: 065
  101. ROSUVASTATIN CALCIUM [Suspect]
     Active Substance: ROSUVASTATIN CALCIUM
     Indication: Product used for unknown indication
     Route: 065
  102. ROSUVASTATIN CALCIUM [Suspect]
     Active Substance: ROSUVASTATIN CALCIUM
     Indication: Ill-defined disorder
     Route: 065
  103. ROSUVASTATIN CALCIUM [Suspect]
     Active Substance: ROSUVASTATIN CALCIUM
     Indication: Blood cholesterol increased
     Route: 065
  104. ROSUVASTATIN CALCIUM [Suspect]
     Active Substance: ROSUVASTATIN CALCIUM
  105. ROSUVASTATIN CALCIUM [Suspect]
     Active Substance: ROSUVASTATIN CALCIUM
  106. METHOTREXATE [Concomitant]
     Active Substance: METHOTREXATE
     Indication: Colitis ulcerative
     Route: 065
  107. METHOTREXATE [Concomitant]
     Active Substance: METHOTREXATE
     Route: 065
  108. METHOTREXATE [Concomitant]
     Active Substance: METHOTREXATE
     Route: 065
  109. METHOTREXATE [Concomitant]
     Active Substance: METHOTREXATE
     Route: 065
  110. METHOTREXATE [Concomitant]
     Active Substance: METHOTREXATE
     Route: 065
  111. NITROFURANTOIN [Concomitant]
     Active Substance: NITROFURANTOIN
     Indication: Product used for unknown indication
     Route: 065
  112. PARAFFIN [Concomitant]
     Active Substance: PARAFFIN
     Indication: Product used for unknown indication
     Route: 065
  113. PRAVASTATIN [Concomitant]
     Active Substance: PRAVASTATIN
     Indication: Product used for unknown indication
     Route: 065
  114. RAMIPRIL [Concomitant]
     Active Substance: RAMIPRIL
     Indication: Ill-defined disorder
     Route: 065
  115. RIVAROXABAN [Concomitant]
     Active Substance: RIVAROXABAN
     Indication: Product used for unknown indication
     Route: 065
  116. TAMSULOSIN HYDROCHLORIDE [Concomitant]
     Active Substance: TAMSULOSIN HYDROCHLORIDE
     Indication: Ill-defined disorder
     Route: 065
  117. TETRAHYDROZOLINE HYDROCHLORIDE [Concomitant]
     Active Substance: TETRAHYDROZOLINE HYDROCHLORIDE
     Indication: Product used for unknown indication
     Route: 065
  118. XELJANZ [Concomitant]
     Active Substance: TOFACITINIB CITRATE
     Indication: Colitis ulcerative
     Route: 048
  119. XELJANZ [Concomitant]
     Active Substance: TOFACITINIB CITRATE
     Route: 048
  120. XELJANZ [Concomitant]
     Active Substance: TOFACITINIB CITRATE
     Route: 048
  121. ADALIMUMAB [Suspect]
     Active Substance: ADALIMUMAB
     Indication: Crohn^s disease
     Route: 058
  122. ADALIMUMAB [Suspect]
     Active Substance: ADALIMUMAB
     Indication: Colitis ulcerative
     Route: 048
  123. ADALIMUMAB [Suspect]
     Active Substance: ADALIMUMAB
  124. ALBENDAZOLE [Suspect]
     Active Substance: ALBENDAZOLE
     Indication: Deep vein thrombosis
     Route: 042
  125. ALBENDAZOLE [Suspect]
     Active Substance: ALBENDAZOLE
     Indication: Colitis ulcerative
     Route: 042
  126. ALBENDAZOLE [Suspect]
     Active Substance: ALBENDAZOLE
     Route: 042
  127. ASACOL [Suspect]
     Active Substance: MESALAMINE
     Indication: Product used for unknown indication
     Route: 065
  128. ASACOL [Suspect]
     Active Substance: MESALAMINE
     Indication: Colitis ulcerative
     Route: 065
  129. ASACOL [Suspect]
     Active Substance: MESALAMINE
     Route: 065
  130. ASACOL [Suspect]
     Active Substance: MESALAMINE
     Route: 065
  131. ASACOL [Suspect]
     Active Substance: MESALAMINE
     Route: 065
  132. ASACOL [Suspect]
     Active Substance: MESALAMINE
     Dosage: THERAPY DURATION; 1.0 MONTHS
     Route: 048
  133. ASACOL [Suspect]
     Active Substance: MESALAMINE
     Route: 065
  134. ASACOL [Suspect]
     Active Substance: MESALAMINE
     Route: 065
  135. ASACOL [Suspect]
     Active Substance: MESALAMINE
     Route: 065
  136. ASACOL [Suspect]
     Active Substance: MESALAMINE
     Route: 065
  137. ASACOL [Suspect]
     Active Substance: MESALAMINE
     Dosage: THERAPY DURATION; 1.0 MONTHS
     Route: 065
  138. ASACOL [Suspect]
     Active Substance: MESALAMINE
     Route: 065
  139. ASACOL [Suspect]
     Active Substance: MESALAMINE
     Dosage: THERAPY DURATION; 1.0 MONTHS
     Route: 065
  140. ASACOL [Suspect]
     Active Substance: MESALAMINE
     Route: 065
  141. ASACOL [Suspect]
     Active Substance: MESALAMINE
     Dosage: TABLET (ENTERIC- COATED)
     Route: 065
  142. ASACOL [Suspect]
     Active Substance: MESALAMINE
     Dosage: DOSAGE FORM: ENTERIC- COATED TABLET
  143. CORTIFOAM [Suspect]
     Active Substance: HYDROCORTISONE ACETATE
     Indication: Deep vein thrombosis
     Route: 065
  144. CORTIFOAM [Suspect]
     Active Substance: HYDROCORTISONE ACETATE
     Indication: Colitis ulcerative
     Dosage: AEROSOL, FOAM,
     Route: 065
  145. CORTIFOAM [Suspect]
     Active Substance: HYDROCORTISONE ACETATE
     Dosage: AEROSOL, FOAM,
     Route: 048
  146. CORTIFOAM [Suspect]
     Active Substance: HYDROCORTISONE ACETATE
     Route: 048
  147. CORTIFOAM [Suspect]
     Active Substance: HYDROCORTISONE ACETATE
     Dosage: AEROSOL, FOAM
     Route: 048
  148. CORTIFOAM [Suspect]
     Active Substance: HYDROCORTISONE ACETATE
     Route: 048
  149. CORTIFOAM [Suspect]
     Active Substance: HYDROCORTISONE ACETATE
     Route: 048
  150. CORTIFOAM [Suspect]
     Active Substance: HYDROCORTISONE ACETATE
     Dosage: AEROSOL, FOAM
     Route: 065
  151. CORTIFOAM [Suspect]
     Active Substance: HYDROCORTISONE ACETATE
     Route: 065
  152. BUDESONIDE [Suspect]
     Active Substance: BUDESONIDE
     Indication: Product used for unknown indication
     Route: 048
  153. CORTISONE ACETATE [Suspect]
     Active Substance: CORTISONE ACETATE
     Indication: Crohn^s disease
     Route: 042
  154. CORTISONE ACETATE [Suspect]
     Active Substance: CORTISONE ACETATE
     Indication: Colitis ulcerative
     Route: 065
  155. CORTISONE ACETATE [Suspect]
     Active Substance: CORTISONE ACETATE
     Route: 048
  156. CORTISONE ACETATE [Suspect]
     Active Substance: CORTISONE ACETATE
     Route: 048
  157. CORTISONE ACETATE [Suspect]
     Active Substance: CORTISONE ACETATE
     Route: 048
  158. CORTISONE ACETATE [Suspect]
     Active Substance: CORTISONE ACETATE
     Route: 048
  159. CORTISONE ACETATE [Suspect]
     Active Substance: CORTISONE ACETATE
     Route: 048
  160. CORTISONE ACETATE [Suspect]
     Active Substance: CORTISONE ACETATE
     Route: 048
  161. CORTISONE ACETATE [Suspect]
     Active Substance: CORTISONE ACETATE
     Route: 065
  162. CORTISONE ACETATE [Suspect]
     Active Substance: CORTISONE ACETATE
     Route: 048
  163. CORTISONE ACETATE [Suspect]
     Active Substance: CORTISONE ACETATE
     Route: 048
  164. CORTISONE ACETATE [Suspect]
     Active Substance: CORTISONE ACETATE
     Route: 048
  165. CORTISONE ACETATE [Suspect]
     Active Substance: CORTISONE ACETATE
     Route: 048
  166. ENTYVIO [Suspect]
     Active Substance: VEDOLIZUMAB
     Indication: Deep vein thrombosis
     Route: 042
  167. ENTYVIO [Suspect]
     Active Substance: VEDOLIZUMAB
     Indication: Colitis ulcerative
  168. EPINEPHRINE HYDROCHLORIDE [Suspect]
     Active Substance: EPINEPHRINE HYDROCHLORIDE
     Indication: Product used for unknown indication
     Route: 065
  169. ESCITALOPRAM OXALATE [Suspect]
     Active Substance: ESCITALOPRAM OXALATE
     Indication: Product used for unknown indication
     Route: 065
  170. FELODIPINE [Suspect]
     Active Substance: FELODIPINE
     Indication: Hypertension
     Route: 048
  171. FELODIPINE [Suspect]
     Active Substance: FELODIPINE
     Dosage: THERAPY DURATION: 366.0 DAYS
     Route: 048
  172. FUROSEMIDE [Suspect]
     Active Substance: FUROSEMIDE
     Indication: Product used for unknown indication
     Route: 065
  173. GABAPENTIN [Suspect]
     Active Substance: GABAPENTIN
     Indication: Product used for unknown indication
     Route: 065
  174. GABAPENTIN [Suspect]
     Active Substance: GABAPENTIN
  175. HYDROCORTISONE [Suspect]
     Active Substance: HYDROCORTISONE
     Indication: Colitis ulcerative
     Route: 048
  176. HYDROCORTISONE [Suspect]
     Active Substance: HYDROCORTISONE
     Route: 048
  177. HYDROCORTISONE [Suspect]
     Active Substance: HYDROCORTISONE
     Route: 048
  178. HYDROCORTISONE [Suspect]
     Active Substance: HYDROCORTISONE
     Route: 065
  179. HYDROCORTISONE [Suspect]
     Active Substance: HYDROCORTISONE
     Route: 065
  180. HYDROCORTISONE [Suspect]
     Active Substance: HYDROCORTISONE
     Route: 065
  181. HYDROCORTISONE [Suspect]
     Active Substance: HYDROCORTISONE
     Route: 048
  182. HYDROCORTISONE [Suspect]
     Active Substance: HYDROCORTISONE
     Route: 065
  183. HYDROCORTISONE [Suspect]
     Active Substance: HYDROCORTISONE
     Route: 048
  184. HYDROCORTISONE [Suspect]
     Active Substance: HYDROCORTISONE
     Route: 048
  185. HYDROCORTISONE [Suspect]
     Active Substance: HYDROCORTISONE
     Route: 065
  186. MEBEVERINE HYDROCHLORIDE [Suspect]
     Active Substance: MEBEVERINE HYDROCHLORIDE
     Indication: Product used for unknown indication
     Route: 065
  187. MEBEVERINE HYDROCHLORIDE [Suspect]
     Active Substance: MEBEVERINE HYDROCHLORIDE
     Route: 065
  188. MESALAMINE [Suspect]
     Active Substance: MESALAMINE
     Indication: Product used for unknown indication
     Route: 065
  189. MESALAMINE [Suspect]
     Active Substance: MESALAMINE
     Indication: Colitis ulcerative
     Route: 048
  190. MESALAMINE [Suspect]
     Active Substance: MESALAMINE
     Route: 065
  191. MESALAMINE [Suspect]
     Active Substance: MESALAMINE
     Route: 065
  192. MESALAMINE [Suspect]
     Active Substance: MESALAMINE
     Route: 065
  193. MESALAMINE [Suspect]
     Active Substance: MESALAMINE
     Route: 065
  194. MESALAMINE [Suspect]
     Active Substance: MESALAMINE
     Route: 065
  195. MESALAMINE [Suspect]
     Active Substance: MESALAMINE
     Route: 065
  196. MESALAMINE [Suspect]
     Active Substance: MESALAMINE
  197. MESALAMINE [Suspect]
     Active Substance: MESALAMINE
     Indication: Product used for unknown indication
     Route: 065
  198. MESALAMINE [Suspect]
     Active Substance: MESALAMINE
     Indication: Colitis ulcerative
     Route: 065
  199. MESALAMINE [Suspect]
     Active Substance: MESALAMINE
     Route: 048
  200. MESALAMINE [Suspect]
     Active Substance: MESALAMINE
     Route: 048
  201. MESALAMINE [Suspect]
     Active Substance: MESALAMINE
     Route: 048
  202. MESALAMINE [Suspect]
     Active Substance: MESALAMINE
     Route: 065
  203. MESALAMINE [Suspect]
     Active Substance: MESALAMINE
     Route: 065
  204. MESALAMINE [Suspect]
     Active Substance: MESALAMINE
     Route: 065
  205. MESALAMINE [Suspect]
     Active Substance: MESALAMINE
     Route: 048
  206. MESALAMINE [Suspect]
     Active Substance: MESALAMINE
     Dosage: 275.0 DAYS
     Route: 065
  207. MESALAMINE [Suspect]
     Active Substance: MESALAMINE
     Route: 048
  208. MESALAMINE [Suspect]
     Active Substance: MESALAMINE
     Route: 048
  209. MESALAMINE [Suspect]
     Active Substance: MESALAMINE
     Route: 065
  210. MESALAMINE [Suspect]
     Active Substance: MESALAMINE
     Route: 065
  211. MESALAMINE [Suspect]
     Active Substance: MESALAMINE
     Route: 065
  212. MESALAMINE [Suspect]
     Active Substance: MESALAMINE
     Dosage: 10.0 MONTHS
     Route: 065
  213. MESALAMINE [Suspect]
     Active Substance: MESALAMINE
     Route: 065
  214. MESALAMINE [Suspect]
     Active Substance: MESALAMINE
     Route: 048
  215. MESALAMINE [Suspect]
     Active Substance: MESALAMINE
     Route: 048
  216. MESALAMINE [Suspect]
     Active Substance: MESALAMINE
     Route: 065
  217. MESALAMINE [Suspect]
     Active Substance: MESALAMINE
     Route: 065
  218. MESALAMINE [Suspect]
     Active Substance: MESALAMINE
     Route: 065
  219. MESALAMINE [Suspect]
     Active Substance: MESALAMINE
     Route: 065
  220. MESALAMINE [Suspect]
     Active Substance: MESALAMINE
     Route: 065
  221. MESALAMINE [Suspect]
     Active Substance: MESALAMINE
     Route: 065
  222. MESALAMINE [Suspect]
     Active Substance: MESALAMINE
     Route: 065
  223. MESALAMINE [Suspect]
     Active Substance: MESALAMINE
     Route: 065
  224. MESALAMINE [Suspect]
     Active Substance: MESALAMINE
     Route: 065
  225. MESALAMINE [Suspect]
     Active Substance: MESALAMINE
     Route: 065
  226. MESALAMINE [Suspect]
     Active Substance: MESALAMINE
     Route: 065
  227. MESALAMINE [Suspect]
     Active Substance: MESALAMINE
     Dosage: THERAPY DURATION: 1.0 MONTHS
     Route: 048
  228. MESALAMINE [Suspect]
     Active Substance: MESALAMINE
     Route: 065
  229. MESALAMINE [Suspect]
     Active Substance: MESALAMINE
     Route: 065
  230. MESALAMINE [Suspect]
     Active Substance: MESALAMINE
     Route: 065
  231. MESALAMINE [Suspect]
     Active Substance: MESALAMINE
     Dosage: THERAPY DURATION: 1.0 MONTHS
     Route: 065
  232. MESALAMINE [Suspect]
     Active Substance: MESALAMINE
     Route: 065
  233. MESALAMINE [Suspect]
     Active Substance: MESALAMINE
     Route: 048
  234. MESALAMINE [Suspect]
     Active Substance: MESALAMINE
     Route: 048
  235. MESALAMINE [Suspect]
     Active Substance: MESALAMINE
     Route: 065
  236. MESALAMINE [Suspect]
     Active Substance: MESALAMINE
     Route: 065
  237. MESALAMINE [Suspect]
     Active Substance: MESALAMINE
     Route: 065
  238. MESALAMINE [Suspect]
     Active Substance: MESALAMINE
     Route: 048
  239. METFORMIN HYDROCHLORIDE [Suspect]
     Active Substance: METFORMIN HYDROCHLORIDE
     Indication: Product used for unknown indication
     Route: 065
  240. SULFASALAZINE [Suspect]
     Active Substance: SULFASALAZINE
     Indication: Product used for unknown indication
     Route: 065
  241. SULFASALAZINE [Suspect]
     Active Substance: SULFASALAZINE
     Indication: Colitis ulcerative
     Route: 065
  242. SULFASALAZINE [Suspect]
     Active Substance: SULFASALAZINE
     Route: 065
  243. SULFASALAZINE [Suspect]
     Active Substance: SULFASALAZINE
     Dosage: 1.0 DAYS
     Route: 048
  244. SULFASALAZINE [Suspect]
     Active Substance: SULFASALAZINE
     Dosage: 2557.0 DAYS
     Route: 065
  245. SULFASALAZINE [Suspect]
     Active Substance: SULFASALAZINE
     Route: 048
  246. SULFASALAZINE [Suspect]
     Active Substance: SULFASALAZINE
     Route: 065
  247. SULFASALAZINE [Suspect]
     Active Substance: SULFASALAZINE
     Route: 065
  248. SULFASALAZINE [Suspect]
     Active Substance: SULFASALAZINE
     Route: 065
  249. SULFASALAZINE [Suspect]
     Active Substance: SULFASALAZINE
     Route: 065
  250. SULFASALAZINE [Suspect]
     Active Substance: SULFASALAZINE
     Route: 065
  251. SULFASALAZINE [Suspect]
     Active Substance: SULFASALAZINE
     Route: 065
  252. SULFASALAZINE [Suspect]
     Active Substance: SULFASALAZINE
     Route: 065
  253. WARFARIN SODIUM [Suspect]
     Active Substance: WARFARIN SODIUM
     Indication: Deep vein thrombosis
     Route: 048
  254. WARFARIN SODIUM [Suspect]
     Active Substance: WARFARIN SODIUM
     Indication: Colitis ulcerative
     Route: 065
  255. WARFARIN SODIUM [Suspect]
     Active Substance: WARFARIN SODIUM
     Route: 065
  256. WARFARIN SODIUM [Suspect]
     Active Substance: WARFARIN SODIUM
     Route: 048
  257. WARFARIN SODIUM [Suspect]
     Active Substance: WARFARIN SODIUM
     Route: 048
  258. WARFARIN SODIUM [Suspect]
     Active Substance: WARFARIN SODIUM
     Route: 065
  259. WARFARIN SODIUM [Suspect]
     Active Substance: WARFARIN SODIUM
     Route: 048
  260. WARFARIN SODIUM [Suspect]
     Active Substance: WARFARIN SODIUM
     Route: 048
  261. WARFARIN SODIUM [Suspect]
     Active Substance: WARFARIN SODIUM
  262. TOZINAMERAN [Suspect]
     Active Substance: TOZINAMERAN
     Indication: Product used for unknown indication
     Route: 065
  263. TOZINAMERAN [Suspect]
     Active Substance: TOZINAMERAN
     Route: 065
  264. VITAMIN D3 [Suspect]
     Active Substance: CHOLECALCIFEROL
     Indication: Product used for unknown indication
     Route: 065
  265. VITAMIN D3 [Suspect]
     Active Substance: CHOLECALCIFEROL
     Indication: Product used for unknown indication
     Route: 065
  266. VITAMIN D3 [Suspect]
     Active Substance: CHOLECALCIFEROL
     Route: 065
  267. WARFARIN [Suspect]
     Active Substance: WARFARIN
     Indication: Deep vein thrombosis
     Route: 065
  268. ADALIMUMAB [Suspect]
     Active Substance: ADALIMUMAB
     Indication: Crohn^s disease
     Route: 048
  269. ADALIMUMAB [Suspect]
     Active Substance: ADALIMUMAB
     Indication: Colitis ulcerative
  270. ADALIMUMAB [Concomitant]
     Active Substance: ADALIMUMAB
     Indication: Crohn^s disease
     Route: 065
  271. ADALIMUMAB [Concomitant]
     Active Substance: ADALIMUMAB
     Route: 048
  272. ADALIMUMAB [Concomitant]
     Active Substance: ADALIMUMAB
     Dosage: FREQUENCY: 1 EVERY 8 WEEKS
     Route: 065
  273. ADALIMUMAB [Concomitant]
     Active Substance: ADALIMUMAB
     Indication: Crohn^s disease
     Route: 048
  274. AMLODIPINE BESYLATE [Concomitant]
     Active Substance: AMLODIPINE BESYLATE
     Indication: Product used for unknown indication
     Route: 065
  275. BUDESONIDE [Suspect]
     Active Substance: BUDESONIDE
     Indication: Colitis ulcerative
     Route: 048
  276. BUDESONIDE [Suspect]
     Active Substance: BUDESONIDE
     Indication: Product used for unknown indication
     Route: 048
  277. BUDESONIDE [Suspect]
     Active Substance: BUDESONIDE
  278. BUDESONIDE [Suspect]
     Active Substance: BUDESONIDE
  279. BUDESONIDE [Suspect]
     Active Substance: BUDESONIDE
     Route: 048
  280. BUDESONIDE [Suspect]
     Active Substance: BUDESONIDE
  281. BUDESONIDE [Suspect]
     Active Substance: BUDESONIDE
  282. BUDESONIDE [Suspect]
     Active Substance: BUDESONIDE
     Route: 048
  283. BUDESONIDE [Suspect]
     Active Substance: BUDESONIDE
     Route: 048
  284. BUDESONIDE [Suspect]
     Active Substance: BUDESONIDE
     Route: 048
  285. BUDESONIDE [Suspect]
     Active Substance: BUDESONIDE
     Indication: Product used for unknown indication
     Route: 048
  286. ADALIMUMAB [Suspect]
     Active Substance: ADALIMUMAB
     Indication: Crohn^s disease
     Route: 065
  287. ADALIMUMAB [Suspect]
     Active Substance: ADALIMUMAB
     Indication: Colitis ulcerative
     Route: 048
  288. BETAMETHASONE VALERATE [Concomitant]
     Active Substance: BETAMETHASONE VALERATE
     Indication: Product used for unknown indication
     Route: 065
  289. BISOPROLOL FUMARATE [Concomitant]
     Active Substance: BISOPROLOL FUMARATE
     Indication: Product used for unknown indication
     Route: 065
  290. DESOXIMETASONE [Suspect]
     Active Substance: DESOXIMETASONE
     Indication: Colitis ulcerative
     Route: 048
  291. DESOXIMETASONE [Suspect]
     Active Substance: DESOXIMETASONE
     Indication: Crohn^s disease
     Route: 048
  292. DESOXIMETASONE [Suspect]
     Active Substance: DESOXIMETASONE
     Route: 048
  293. DESOXIMETASONE [Suspect]
     Active Substance: DESOXIMETASONE
     Route: 048
  294. DESOXIMETASONE [Suspect]
     Active Substance: DESOXIMETASONE
     Route: 065
  295. DESOXIMETASONE [Suspect]
     Active Substance: DESOXIMETASONE
     Route: 048
  296. DESOXIMETASONE [Suspect]
     Active Substance: DESOXIMETASONE
     Route: 048
  297. DESOXIMETASONE [Suspect]
     Active Substance: DESOXIMETASONE
     Route: 048
  298. DESOXIMETASONE [Suspect]
     Active Substance: DESOXIMETASONE
     Route: 048
  299. DESOXIMETASONE [Suspect]
     Active Substance: DESOXIMETASONE
     Route: 048
  300. FELODIPINE [Suspect]
     Active Substance: FELODIPINE
     Indication: Hypertension
     Route: 048
  301. GABAPENTIN [Suspect]
     Active Substance: GABAPENTIN
     Indication: Product used for unknown indication
     Route: 065
  302. INFLIXIMAB [Suspect]
     Active Substance: INFLIXIMAB
     Indication: Crohn^s disease
     Route: 042
  303. INFLIXIMAB [Suspect]
     Active Substance: INFLIXIMAB
     Indication: Colitis ulcerative
     Dosage: THERAPY DURATION: 244.0 DAYS
     Route: 042
  304. INFLIXIMAB [Suspect]
     Active Substance: INFLIXIMAB
     Route: 065
  305. INFLIXIMAB [Suspect]
     Active Substance: INFLIXIMAB
     Dosage: THERAPY DURATION: 244.0 DAYS
     Route: 042
  306. INFLIXIMAB [Suspect]
     Active Substance: INFLIXIMAB
     Dosage: THERAPY DURATION: 244.0 DAYS
     Route: 042
  307. INFLIXIMAB [Suspect]
     Active Substance: INFLIXIMAB
     Route: 042
  308. INFLIXIMAB [Suspect]
     Active Substance: INFLIXIMAB
     Route: 065
  309. INFLIXIMAB [Suspect]
     Active Substance: INFLIXIMAB
     Route: 042
  310. INFLIXIMAB [Suspect]
     Active Substance: INFLIXIMAB
     Route: 065
  311. INFLIXIMAB [Suspect]
     Active Substance: INFLIXIMAB
     Route: 042
  312. INFLIXIMAB [Suspect]
     Active Substance: INFLIXIMAB
     Route: 042
  313. INFLIXIMAB [Suspect]
     Active Substance: INFLIXIMAB
     Route: 065
  314. INFLIXIMAB [Suspect]
     Active Substance: INFLIXIMAB
     Route: 042
  315. MESALAMINE [Suspect]
     Active Substance: MESALAMINE
     Indication: Product used for unknown indication
     Route: 065
  316. MESALAMINE [Suspect]
     Active Substance: MESALAMINE
     Indication: Colitis ulcerative
     Route: 065
  317. MESALAMINE [Suspect]
     Active Substance: MESALAMINE
     Dosage: THERAPY DURATION: 10.0 MONTH
     Route: 065
  318. MESALAMINE [Suspect]
     Active Substance: MESALAMINE
     Route: 065
  319. MESALAMINE [Suspect]
     Active Substance: MESALAMINE
     Route: 065
  320. MESALAMINE [Suspect]
     Active Substance: MESALAMINE
     Dosage: THERAPY DURATION: 275.0 DAYS
     Route: 065
  321. MESALAMINE [Suspect]
     Active Substance: MESALAMINE
     Route: 065
  322. MESALAMINE [Suspect]
     Active Substance: MESALAMINE
     Route: 065
  323. MESALAMINE [Suspect]
     Active Substance: MESALAMINE
     Route: 048
  324. MESALAMINE [Suspect]
     Active Substance: MESALAMINE
     Route: 065
  325. MESALAMINE [Suspect]
     Active Substance: MESALAMINE
     Route: 065
  326. MESALAMINE [Suspect]
     Active Substance: MESALAMINE
     Route: 065
  327. MESALAMINE [Suspect]
     Active Substance: MESALAMINE
     Dosage: THERAPY DURATION: 10.0 MONTHS
     Route: 065
  328. MESALAMINE [Suspect]
     Active Substance: MESALAMINE
     Route: 065
  329. MESALAMINE [Suspect]
     Active Substance: MESALAMINE
     Route: 065
  330. MESALAMINE [Suspect]
     Active Substance: MESALAMINE
     Route: 065
  331. MESALAMINE [Suspect]
     Active Substance: MESALAMINE
     Route: 065
  332. MESALAMINE [Suspect]
     Active Substance: MESALAMINE
     Route: 065
  333. MESALAMINE [Suspect]
     Active Substance: MESALAMINE
  334. MESALAMINE [Suspect]
     Active Substance: MESALAMINE
  335. MESALAMINE [Suspect]
     Active Substance: MESALAMINE
  336. MESALAMINE [Suspect]
     Active Substance: MESALAMINE
  337. MESALAMINE [Suspect]
     Active Substance: MESALAMINE
  338. MESALAMINE [Suspect]
     Active Substance: MESALAMINE
  339. MESALAMINE [Suspect]
     Active Substance: MESALAMINE
     Route: 048
  340. MESALAMINE [Suspect]
     Active Substance: MESALAMINE
     Route: 048
  341. MESALAMINE [Suspect]
     Active Substance: MESALAMINE
     Route: 048
  342. MESALAMINE [Suspect]
     Active Substance: MESALAMINE
  343. MESALAMINE [Suspect]
     Active Substance: MESALAMINE
     Route: 048
  344. MESALAMINE [Suspect]
     Active Substance: MESALAMINE
  345. MESALAMINE [Suspect]
     Active Substance: MESALAMINE
  346. MESALAMINE [Suspect]
     Active Substance: MESALAMINE
     Route: 048
  347. MESALAMINE [Suspect]
     Active Substance: MESALAMINE
     Route: 048
  348. MESALAMINE [Suspect]
     Active Substance: MESALAMINE
     Route: 048
  349. ASACOL [Suspect]
     Active Substance: MESALAMINE
     Indication: Product used for unknown indication
  350. ASACOL [Suspect]
     Active Substance: MESALAMINE
     Indication: Colitis ulcerative
  351. ASACOL [Suspect]
     Active Substance: MESALAMINE
  352. ASACOL [Suspect]
     Active Substance: MESALAMINE
  353. ASACOL [Suspect]
     Active Substance: MESALAMINE
     Dosage: THERAPY DURATION: 1.0 MONTHS
     Route: 048
  354. ASACOL [Suspect]
     Active Substance: MESALAMINE
  355. ASACOL [Suspect]
     Active Substance: MESALAMINE
     Dosage: THERAPY DURATION: 1.0 MONTHS
  356. ASACOL [Suspect]
     Active Substance: MESALAMINE
     Dosage: THERAPY DURATION: 1.0 MONTHS
  357. ASACOL [Suspect]
     Active Substance: MESALAMINE
  358. ASACOL [Suspect]
     Active Substance: MESALAMINE
  359. ASACOL [Suspect]
     Active Substance: MESALAMINE
  360. ASACOL [Suspect]
     Active Substance: MESALAMINE
  361. ASACOL [Suspect]
     Active Substance: MESALAMINE
  362. ASACOL [Suspect]
     Active Substance: MESALAMINE
  363. CANDESARTAN [Suspect]
     Active Substance: CANDESARTAN
     Indication: Product used for unknown indication
     Route: 048
  364. COMIRNATY (TOZINAMERAN) [Suspect]
     Active Substance: TOZINAMERAN
     Indication: Product used for unknown indication
  365. CORTIFOAM [Suspect]
     Active Substance: HYDROCORTISONE ACETATE
     Indication: Deep vein thrombosis
     Route: 048
  366. CORTIFOAM [Suspect]
     Active Substance: HYDROCORTISONE ACETATE
     Indication: Colitis ulcerative
  367. CORTIFOAM [Suspect]
     Active Substance: HYDROCORTISONE ACETATE
     Indication: Deep vein thrombosis
     Route: 048
  368. CORTIFOAM [Suspect]
     Active Substance: HYDROCORTISONE ACETATE
     Indication: Colitis ulcerative
     Route: 048
  369. CORTIFOAM [Suspect]
     Active Substance: HYDROCORTISONE ACETATE
  370. CORTIFOAM [Suspect]
     Active Substance: HYDROCORTISONE ACETATE
  371. CORTIFOAM [Suspect]
     Active Substance: HYDROCORTISONE ACETATE
  372. CORTIFOAM [Suspect]
     Active Substance: HYDROCORTISONE ACETATE
     Route: 048
  373. CORTIFOAM [Suspect]
     Active Substance: HYDROCORTISONE ACETATE
  374. CORTIFOAM [Suspect]
     Active Substance: HYDROCORTISONE ACETATE
     Route: 048
  375. ENTYVIO [Suspect]
     Active Substance: VEDOLIZUMAB
     Indication: Product used for unknown indication
  376. ENTYVIO [Suspect]
     Active Substance: VEDOLIZUMAB
     Indication: Deep vein thrombosis
  377. ENTYVIO [Suspect]
     Active Substance: VEDOLIZUMAB
     Indication: Colitis ulcerative
  378. ENTYVIO [Suspect]
     Active Substance: VEDOLIZUMAB
     Route: 048
  379. ENTYVIO [Suspect]
     Active Substance: VEDOLIZUMAB
  380. ENTYVIO [Suspect]
     Active Substance: VEDOLIZUMAB
     Route: 048
  381. ENTYVIO [Suspect]
     Active Substance: VEDOLIZUMAB
     Route: 048
  382. ENTYVIO [Suspect]
     Active Substance: VEDOLIZUMAB
     Route: 042
  383. ENTYVIO [Suspect]
     Active Substance: VEDOLIZUMAB
     Route: 042
  384. ESCITALOPRAM OXALATE [Suspect]
     Active Substance: ESCITALOPRAM OXALATE
     Indication: Product used for unknown indication
  385. CITALOPRAM HYDROBROMIDE [Concomitant]
     Active Substance: CITALOPRAM HYDROBROMIDE
     Indication: Product used for unknown indication
     Route: 065
  386. FELODIPINE [Suspect]
     Active Substance: FELODIPINE
     Indication: Hypertension
     Route: 048
  387. FELODIPINE [Suspect]
     Active Substance: FELODIPINE
     Route: 048
  388. HYDROCORTISONE ACETATE [Suspect]
     Active Substance: HYDROCORTISONE ACETATE
     Indication: Colitis ulcerative
     Route: 048
  389. INFLIXIMAB [Suspect]
     Active Substance: INFLIXIMAB
     Indication: Crohn^s disease
     Route: 042
  390. INFLIXIMAB [Suspect]
     Active Substance: INFLIXIMAB
     Indication: Colitis ulcerative
     Route: 048
  391. INFLIXIMAB [Suspect]
     Active Substance: INFLIXIMAB
     Route: 042
  392. INFLIXIMAB [Suspect]
     Active Substance: INFLIXIMAB
     Route: 065
  393. INFLIXIMAB [Suspect]
     Active Substance: INFLIXIMAB
     Route: 042
  394. INFLIXIMAB [Suspect]
     Active Substance: INFLIXIMAB
     Route: 042
  395. INFLIXIMAB [Suspect]
     Active Substance: INFLIXIMAB
     Route: 042
  396. INFLIXIMAB [Suspect]
     Active Substance: INFLIXIMAB
     Route: 042
  397. LISDEXAMFETAMINE DIMESYLATE [Suspect]
     Active Substance: LISDEXAMFETAMINE DIMESYLATE
     Indication: Attention deficit hyperactivity disorder
     Route: 065
  398. PREDNISONE [Suspect]
     Active Substance: PREDNISONE
     Indication: Colitis ulcerative
     Route: 065
  399. PREDNISONE [Suspect]
     Active Substance: PREDNISONE
     Route: 065
  400. PREDNISONE [Suspect]
     Active Substance: PREDNISONE
     Route: 065
  401. PREDNISONE [Suspect]
     Active Substance: PREDNISONE
  402. PREDNISONE [Suspect]
     Active Substance: PREDNISONE
     Dosage: THERAPY DURATION: 8.0 YEARS
  403. PREDNISONE [Suspect]
     Active Substance: PREDNISONE
  404. PREDNISONE [Suspect]
     Active Substance: PREDNISONE
  405. VEDOLIZUMAB [Suspect]
     Active Substance: VEDOLIZUMAB
     Indication: Product used for unknown indication
     Route: 042
  406. VEDOLIZUMAB [Suspect]
     Active Substance: VEDOLIZUMAB
     Route: 048
  407. VEDOLIZUMAB [Suspect]
     Active Substance: VEDOLIZUMAB
     Route: 048
  408. VEDOLIZUMAB [Suspect]
     Active Substance: VEDOLIZUMAB
     Route: 065
  409. VEDOLIZUMAB [Suspect]
     Active Substance: VEDOLIZUMAB
     Route: 042
  410. VEDOLIZUMAB [Suspect]
     Active Substance: VEDOLIZUMAB
     Route: 065
  411. VEDOLIZUMAB [Suspect]
     Active Substance: VEDOLIZUMAB
     Route: 065
  412. VEDOLIZUMAB [Suspect]
     Active Substance: VEDOLIZUMAB
     Route: 048
  413. VEDOLIZUMAB [Suspect]
     Active Substance: VEDOLIZUMAB
     Indication: Colitis ulcerative
     Route: 048
  414. VEDOLIZUMAB [Suspect]
     Active Substance: VEDOLIZUMAB
     Indication: Product used for unknown indication
     Route: 065
  415. VEDOLIZUMAB [Suspect]
     Active Substance: VEDOLIZUMAB
     Route: 042
  416. HYDROCORTISONE ACETATE [Suspect]
     Active Substance: HYDROCORTISONE ACETATE
     Indication: Colitis ulcerative
     Route: 065
  417. HYDROCORTISONE ACETATE [Suspect]
     Active Substance: HYDROCORTISONE ACETATE
     Route: 048
  418. HYDROCORTISONE ACETATE [Suspect]
     Active Substance: HYDROCORTISONE ACETATE
     Dosage: THERAPY DURATION: 11.0 YEARS
     Route: 065
  419. HYDROCORTISONE ACETATE [Suspect]
     Active Substance: HYDROCORTISONE ACETATE
     Route: 048
  420. HYDROCORTISONE ACETATE [Suspect]
     Active Substance: HYDROCORTISONE ACETATE
     Route: 048
  421. HYDROCORTISONE ACETATE [Suspect]
     Active Substance: HYDROCORTISONE ACETATE
     Route: 065
  422. HYDROCORTISONE ACETATE [Suspect]
     Active Substance: HYDROCORTISONE ACETATE
     Route: 048
  423. HYDROCORTISONE ACETATE [Suspect]
     Active Substance: HYDROCORTISONE ACETATE
     Route: 048
  424. ENTYVIO [Suspect]
     Active Substance: VEDOLIZUMAB
     Indication: Deep vein thrombosis
     Route: 048
  425. ENTYVIO [Suspect]
     Active Substance: VEDOLIZUMAB
     Indication: Colitis ulcerative
  426. VYVANSE [Suspect]
     Active Substance: LISDEXAMFETAMINE DIMESYLATE
     Indication: Attention deficit hyperactivity disorder
  427. MESALAMINE [Suspect]
     Active Substance: MESALAMINE
     Indication: Product used for unknown indication

REACTIONS (52)
  - Systemic lupus erythematosus [Not Recovered/Not Resolved]
  - Alcohol poisoning [Not Recovered/Not Resolved]
  - Gingival pain [Not Recovered/Not Resolved]
  - Adverse drug reaction [Not Recovered/Not Resolved]
  - Accidental overdose [Not Recovered/Not Resolved]
  - Swollen tongue [Not Recovered/Not Resolved]
  - Burns second degree [Not Recovered/Not Resolved]
  - Pain [Not Recovered/Not Resolved]
  - Rhinitis [Not Recovered/Not Resolved]
  - Confusional state [Not Recovered/Not Resolved]
  - Haematochezia [Not Recovered/Not Resolved]
  - Cardiac murmur [Not Recovered/Not Resolved]
  - Migraine [Not Recovered/Not Resolved]
  - Condition aggravated [Not Recovered/Not Resolved]
  - Fatigue [Not Recovered/Not Resolved]
  - Stress [Not Recovered/Not Resolved]
  - Pulmonary embolism [Not Recovered/Not Resolved]
  - Vertigo [Not Recovered/Not Resolved]
  - Rectal haemorrhage [Not Recovered/Not Resolved]
  - Cerebrovascular accident [Not Recovered/Not Resolved]
  - Product use in unapproved indication [Not Recovered/Not Resolved]
  - Bronchiectasis [Not Recovered/Not Resolved]
  - Abdominal discomfort [Not Recovered/Not Resolved]
  - Steroid dependence [Not Recovered/Not Resolved]
  - Hypopnoea [Not Recovered/Not Resolved]
  - Eczema [Not Recovered/Not Resolved]
  - Nightmare [Not Recovered/Not Resolved]
  - Drug ineffective [Not Recovered/Not Resolved]
  - Palpitations [Not Recovered/Not Resolved]
  - Intentional product use issue [Not Recovered/Not Resolved]
  - Tubulointerstitial nephritis [Not Recovered/Not Resolved]
  - Catarrh [Not Recovered/Not Resolved]
  - Parosmia [Not Recovered/Not Resolved]
  - Colitis ulcerative [Not Recovered/Not Resolved]
  - Loss of personal independence in daily activities [Not Recovered/Not Resolved]
  - Depression [Not Recovered/Not Resolved]
  - Pain in extremity [Not Recovered/Not Resolved]
  - Medication error [Not Recovered/Not Resolved]
  - Dysgeusia [Not Recovered/Not Resolved]
  - Inappropriate schedule of product administration [Not Recovered/Not Resolved]
  - Rash [Not Recovered/Not Resolved]
  - Off label use [Not Recovered/Not Resolved]
  - Headache [Not Recovered/Not Resolved]
  - Deep vein thrombosis [Not Recovered/Not Resolved]
  - Arthritis [Not Recovered/Not Resolved]
  - Pyrexia [Not Recovered/Not Resolved]
  - Weight decreased [Not Recovered/Not Resolved]
  - Impaired work ability [Not Recovered/Not Resolved]
  - Somnolence [Not Recovered/Not Resolved]
  - Frequent bowel movements [Not Recovered/Not Resolved]
  - COVID-19 [Not Recovered/Not Resolved]
  - Tinnitus [Not Recovered/Not Resolved]
